FAERS Safety Report 14506189 (Version 1)
Quarter: 2018Q1

REPORT INFORMATION
  Report Type: Spontaneous
  Country: CH (occurrence: CH)
  Receive Date: 20180208
  Receipt Date: 20180208
  Transmission Date: 20180509
  Serious: Yes (Hospitalization)
  Sender: FDA-Public Use
  Company Number: CH-PFIZER INC-2018051685

PATIENT
  Age: 39 Year
  Sex: Female

DRUGS (2)
  1. PETINUTIN [Suspect]
     Active Substance: METHSUXIMIDE
     Dosage: 900 MG, 2X/DAY (300MG IN THE EVENING AND 600MG IN THE MORNING)
  2. PREGABALIN PFIZER [Suspect]
     Active Substance: PREGABALIN
     Dosage: 150 MG (2X 75 MG CAPSULE), UNK

REACTIONS (2)
  - Choking [Unknown]
  - Wrong technique in product usage process [Unknown]
